FAERS Safety Report 17350909 (Version 1)
Quarter: 2020Q1

REPORT INFORMATION
  Report Type: Spontaneous
  Country: BE (occurrence: BE)
  Receive Date: 20200130
  Receipt Date: 20200130
  Transmission Date: 20200409
  Serious: Yes (Other)
  Sender: FDA-Public Use
  Company Number: BE-TEVA-2020-BE-1176395

PATIENT
  Age: 7 Year
  Sex: Male

DRUGS (1)
  1. AMOXICILLINE 250 MG/5 ML [Suspect]
     Active Substance: AMOXICILLIN
     Dosage: 5 ML
     Route: 048

REACTIONS (2)
  - Angioedema [Unknown]
  - Urticaria [Unknown]
